FAERS Safety Report 21135386 (Version 1)
Quarter: 2022Q3

REPORT INFORMATION
  Report Type: Report from Study
  Country: US (occurrence: US)
  Receive Date: 20220727
  Receipt Date: 20220727
  Transmission Date: 20221026
  Serious: Yes (Other)
  Sender: FDA-Public Use
  Company Number: US-AMGEN-USASL2022125570

PATIENT
  Age: 60 Year
  Sex: Female

DRUGS (2)
  1. ENBREL [Suspect]
     Active Substance: ETANERCEPT
     Indication: Psoriatic arthropathy
     Dosage: 50 MILLIGRAM EVERY 15 DAYS
     Route: 065
     Dates: end: 202004
  2. ENBREL [Suspect]
     Active Substance: ETANERCEPT
     Indication: Psoriasis
     Dosage: 50 MILLIGRAM EVERY 15 DAYS
     Route: 065
     Dates: start: 2021

REACTIONS (4)
  - Diverticulitis [Recovered/Resolved]
  - Pneumonia [Unknown]
  - Influenza [Unknown]
  - Inappropriate schedule of product administration [Unknown]

NARRATIVE: CASE EVENT DATE: 20200401
